FAERS Safety Report 9473566 (Version 1)
Quarter: 2013Q3

REPORT INFORMATION
  Report Type: Report from Study
  Country: DE (occurrence: DE)
  Receive Date: 20130823
  Receipt Date: 20130823
  Transmission Date: 20140515
  Serious: Yes (Hospitalization)
  Sender: FDA-Public Use
  Company Number: DE-SANOFI-AVENTIS-2013SA082000

PATIENT
  Age: 72 Year
  Sex: Female
  Weight: 83 kg

DRUGS (5)
  1. MULTAQ [Suspect]
     Indication: ATRIAL FIBRILLATION
     Route: 065
     Dates: start: 20120829, end: 201307
  2. VIT K ANTAGONISTS [Concomitant]
     Dates: start: 20120829
  3. RAMIPRIL [Concomitant]
  4. TORASEMIDE [Concomitant]
  5. PANTOPRAZOLE [Concomitant]

REACTIONS (4)
  - Atrial fibrillation [Unknown]
  - Cardiac failure [Unknown]
  - Atrial fibrillation [Unknown]
  - Alanine aminotransferase increased [Unknown]
